FAERS Safety Report 10464953 (Version 1)
Quarter: 2014Q3

REPORT INFORMATION
  Report Type: Spontaneous
  Country: US (occurrence: US)
  Receive Date: 20140919
  Receipt Date: 20140919
  Transmission Date: 20150326
  Serious: No
  Sender: FDA-Public Use
  Company Number: US-BAUSCH-SYM-2013-12393

PATIENT
  Age: 62 Year
  Sex: Female
  Weight: 77.18 kg

DRUGS (2)
  1. LIPITOR [Concomitant]
     Active Substance: ATORVASTATIN CALCIUM
     Indication: PRODUCT USED FOR UNKNOWN INDICATION
  2. KINERASE PRO THERAPY TRETINOIN [Suspect]
     Active Substance: TRETINOIN
     Indication: SKIN COSMETIC PROCEDURE
     Dosage: ONCE DAILY AT BEDTIME
     Route: 061
     Dates: start: 20131021, end: 20131026

REACTIONS (3)
  - Application site exfoliation [Recovering/Resolving]
  - Application site pain [Recovering/Resolving]
  - Application site erythema [Recovering/Resolving]

NARRATIVE: CASE EVENT DATE: 20131026
